FAERS Safety Report 5114670-6 (Version None)
Quarter: 2006Q3

REPORT INFORMATION
  Report Type: 
  Country: None (occurrence: None)
  Receive Date: 20060926
  Receipt Date: 20060914
  Transmission Date: 20061208
  Serious: Yes (Death, Other)
  Sender: FDA-Public Use
  Company Number: US-JNJFOC-20050505062

PATIENT
  Sex: Female

DRUGS (7)
  1. REMICADE [Suspect]
     Indication: RHEUMATOID ARTHRITIS
     Route: 042
  2. ARAVA [Concomitant]
     Dosage: AS PER PATIENT QUESTIONNAIRE DATED 25-MAR-2004.
  3. CALCIUM GLUCONATE [Concomitant]
     Dosage: AS PER PATIENT QUESTIONNAIRE DATED 25-MAR-2004.
  4. FOLIC ACID [Concomitant]
     Dosage: AS PER PATIENT QUESTIONNAIRE DATED 25-MAR-2004.
  5. FOSAMAX [Concomitant]
     Dosage: AS PER PATIENT QUESTIONNAIRE DATED 25-MAR-2004.
  6. VITAMIN B6 [Concomitant]
     Dosage: AS PER PATIENT QUESTIONNAIRE DATED 25-MAR-2004.
  7. VITAMIN D [Concomitant]
     Dosage: AS PER PATIENT QUESTIONNAIRE DATED 25-MAR-2004.

REACTIONS (4)
  - DEATH [None]
  - NEOPLASM MALIGNANT [None]
  - RESPIRATORY TRACT CARCINOMA IN SITU [None]
  - RHEUMATOID ARTHRITIS [None]
